FAERS Safety Report 11079607 (Version 2)
Quarter: 2016Q3

REPORT INFORMATION
  Report Type: Spontaneous
  Country: IE (occurrence: IE)
  Receive Date: 20150430
  Receipt Date: 20160822
  Transmission Date: 20161109
  Serious: Yes (Other)
  Sender: FDA-Public Use
  Company Number: IE-PFIZER INC-2015055997

PATIENT
  Age: 45 Year
  Sex: Male

DRUGS (1)
  1. SUTENT [Suspect]
     Active Substance: SUNITINIB MALATE
     Indication: METASTATIC RENAL CELL CARCINOMA
     Dosage: 37.5 MG, CYCLIC (2/1 SCHEME)

REACTIONS (4)
  - Dysgeusia [Unknown]
  - Hypertension [Unknown]
  - Tumour pain [Unknown]
  - Palmar-plantar erythrodysaesthesia syndrome [Unknown]
